FAERS Safety Report 15984729 (Version 2)
Quarter: 2019Q1

REPORT INFORMATION
  Report Type: Spontaneous
  Country: US (occurrence: US)
  Receive Date: 20190220
  Receipt Date: 20190314
  Transmission Date: 20190418
  Serious: No
  Sender: FDA-Public Use
  Company Number: US-HORIZON-ACT-0034-2019

PATIENT
  Age: 30 Year
  Sex: Male

DRUGS (11)
  1. SPORANOX [Concomitant]
     Active Substance: ITRACONAZOLE
  2. HIBICLENS [Concomitant]
     Active Substance: CHLORHEXIDINE GLUCONATE
  3. MIRALAX [Concomitant]
     Active Substance: POLYETHYLENE GLYCOL 3350
  4. IBUPROFEN. [Concomitant]
     Active Substance: IBUPROFEN
  5. ACTIMMUNE [Suspect]
     Active Substance: INTERFERON GAMMA-1B
     Indication: CHRONIC GRANULOMATOUS DISEASE
     Dosage: 0.5 ML (100 MCG) THREE TIMES WEEKLY
     Route: 058
  6. BACTRIM DS [Concomitant]
     Active Substance: SULFAMETHOXAZOLE\TRIMETHOPRIM
  7. TYLENOL WITH CODEINE [Concomitant]
     Active Substance: ACETAMINOPHEN\CODEINE PHOSPHATE
  8. ZYVOX [Concomitant]
     Active Substance: LINEZOLID
  9. DRONABINOL. [Concomitant]
     Active Substance: DRONABINOL
  10. NEUTROGENA T-GEL SHAMPOO [Concomitant]
  11. PENLAC [Concomitant]
     Active Substance: CICLOPIROX

REACTIONS (4)
  - Rhinorrhoea [Recovered/Resolved]
  - Pruritus [Recovered/Resolved]
  - Withdrawal syndrome [Recovered/Resolved]
  - Product dose omission [Unknown]
